FAERS Safety Report 8121974-1 (Version None)
Quarter: 2012Q1

REPORT INFORMATION
  Report Type: 
  Country: None (occurrence: None)
  Receive Date: 20120208
  Receipt Date: 20120130
  Transmission Date: 20120608
  Serious: Yes (Other)
  Sender: FDA-Public Use
  Company Number: US-BAYER-2011-083301

PATIENT
  Age: 30 Year
  Sex: Female

DRUGS (5)
  1. YAZ [Suspect]
     Dosage: UNK
     Dates: start: 20050101
  2. ZITHROMAX [Concomitant]
     Indication: GASTROENTERITIS VIRAL
     Dosage: UNK
     Dates: start: 20050801
  3. MOTRIN [Concomitant]
     Indication: PAIN
     Dosage: 800 MG, TID
     Route: 048
     Dates: start: 20050718
  4. YASMIN [Suspect]
     Dosage: UNK
     Dates: start: 20050101
  5. DARVOCET-N 50 [Concomitant]
     Indication: PAIN
     Dosage: 2 DF, HS
     Route: 048
     Dates: start: 20050718

REACTIONS (8)
  - CHOLECYSTECTOMY [None]
  - INJURY [None]
  - DEEP VEIN THROMBOSIS [None]
  - PAIN [None]
  - ANXIETY [None]
  - EMOTIONAL DISTRESS [None]
  - ANHEDONIA [None]
  - PULMONARY EMBOLISM [None]
